FAERS Safety Report 5131292-1 (Version None)
Quarter: 2006Q4

REPORT INFORMATION
  Report Type: 
  Country: None (occurrence: None)
  Receive Date: 20061016
  Receipt Date: 20061004
  Transmission Date: 20070319
  Serious: Yes (Other)
  Sender: FDA-Public Use
  Company Number: 2006084350

PATIENT
  Age: 79 Year
  Sex: Male
  Weight: 95.2554 kg

DRUGS (5)
  1. VIAGRA [Suspect]
     Indication: ERECTILE DYSFUNCTION
     Dosage: 50 MG, AS NECESSARY, ORAL
     Route: 048
  2. BETAPACE [Concomitant]
  3. HYDREA [Concomitant]
  4. LEVSIN (HYOCYAMINE SULFATE) [Concomitant]
  5. NEXIUM [Concomitant]

REACTIONS (11)
  - DRUG INEFFECTIVE [None]
  - INCORRECT DOSE ADMINISTERED [None]
  - PENIS DISORDER [None]
  - PLATELET COUNT INCREASED [None]
  - POOR QUALITY DRUG ADMINISTERED [None]
  - PROCEDURAL PAIN [None]
  - RECURRENT CANCER [None]
  - SKIN CANCER [None]
  - UNEVALUABLE EVENT [None]
  - URINE OUTPUT INCREASED [None]
  - WRONG TECHNIQUE IN DRUG USAGE PROCESS [None]
